FAERS Safety Report 5155276-2 (Version None)
Quarter: 2006Q4

REPORT INFORMATION
  Report Type: 
  Country: None (occurrence: None)
  Receive Date: 20061121
  Receipt Date: 20061108
  Transmission Date: 20070319
  Serious: Yes (Hospitalization, Other)
  Sender: FDA-Public Use
  Company Number: PHBS2006US17351

PATIENT
  Age: 10 Year
  Sex: Male

DRUGS (10)
  1. CYCLOSPORINE [Suspect]
     Indication: LUNG TRANSPLANT
  2. NEORAL [Suspect]
     Indication: LUNG TRANSPLANT
     Dosage: 8 MG, BID
     Route: 048
  3. PREDNISOLONE [Concomitant]
     Dosage: 0.85 ML, QID
  4. MAGNESIA [Concomitant]
     Dosage: 3 CM3, BID
  5. NYSTATIN [Concomitant]
     Dosage: 3 ML, BID
  6. BACTRIM DS [Concomitant]
     Dosage: 2.5 ML, BID
  7. CELLCEPT [Concomitant]
     Dosage: 1.5 G, BID
  8. DAPSONE [Concomitant]
     Dosage: 50 MG, BID
  9. ZANTAC [Concomitant]
     Dosage: 150 MG/DAY
  10. CEPHALEXIN [Concomitant]
     Dosage: 250 MG, QID

REACTIONS (9)
  - ACROCHORDON [None]
  - ANKYLOGLOSSIA ACQUIRED [None]
  - BUCCAL CAVITY PAPILLOMA [None]
  - GINGIVAL HYPERTROPHY [None]
  - GINGIVECTOMY [None]
  - LIP DISORDER [None]
  - LIP OPERATION [None]
  - SKIN HYPERTROPHY [None]
  - SKIN LESION [None]
